FAERS Safety Report 23559707 (Version 1)
Quarter: 2024Q1

REPORT INFORMATION
  Report Type: Report from Study
  Country: US (occurrence: US)
  Receive Date: 20240223
  Receipt Date: 20240223
  Transmission Date: 20240410
  Serious: No
  Sender: FDA-Public Use
  Company Number: US-SANDOZ-SDZ2023US075940

PATIENT
  Sex: Male

DRUGS (2)
  1. OMNITROPE [Suspect]
     Active Substance: SOMATROPIN
     Indication: Small for dates baby
     Dosage: 0.3 MG 2 DOSE EVERY N/A N/A
     Route: 058
     Dates: start: 20231031
  2. OMNITROPE [Suspect]
     Active Substance: SOMATROPIN
     Indication: Small for dates baby
     Dosage: 0.3 MG 2 DOSE EVERY N/A N/A
     Route: 058
     Dates: start: 20231031

REACTIONS (1)
  - Expired device used [Unknown]
